FAERS Safety Report 10801185 (Version 1)
Quarter: 2015Q1

REPORT INFORMATION
  Report Type: Spontaneous
  Country: IL (occurrence: IL)
  Receive Date: 20150216
  Receipt Date: 20150216
  Transmission Date: 20150721
  Serious: Yes (Other)
  Sender: FDA-Public Use
  Company Number: IL-009507513-1502ISR005414

PATIENT
  Age: 44 Year
  Sex: Female

DRUGS (6)
  1. RIBAVIRIN. [Suspect]
     Active Substance: RIBAVIRIN
     Indication: CHRONIC HEPATITIS C
     Dosage: 1200 MG, QD
     Route: 048
  2. LEGALON [Suspect]
     Active Substance: MILK THISTLE
     Dosage: 1400 MG/DAY
     Route: 042
  3. LEGALON [Suspect]
     Active Substance: MILK THISTLE
     Indication: CHRONIC HEPATITIS C
     Dosage: 1200 MG/DAY
     Route: 042
  4. VITAMIN D [Concomitant]
     Active Substance: CHOLECALCIFEROL
     Dosage: 6000 U/DAY
  5. RIBAVIRIN. [Suspect]
     Active Substance: RIBAVIRIN
     Dosage: 1000 MG, QD
     Route: 048
  6. PEGINTERFERON ALFA-2A [Suspect]
     Active Substance: PEGINTERFERON ALFA-2A
     Indication: CHRONIC HEPATITIS C
     Dosage: UNK

REACTIONS (2)
  - Haemoglobin decreased [Unknown]
  - Mental disorder [Unknown]
